FAERS Safety Report 5320732-0 (Version None)
Quarter: 2007Q2

REPORT INFORMATION
  Report Type: 
  Country: None (occurrence: None)
  Receive Date: 20070509
  Receipt Date: 20070430
  Transmission Date: 20071010
  Serious: Yes (Other)
  Sender: FDA-Public Use
  Company Number: KR-PFIZER INC-2007035992

PATIENT
  Sex: Male

DRUGS (2)
  1. VIAGRA [Suspect]
     Route: 048
  2. ANTIHYPERTENSIVES [Concomitant]
     Route: 048

REACTIONS (4)
  - ERYTHEMA [None]
  - PRURITUS [None]
  - SWELLING FACE [None]
  - URTICARIA [None]
